FAERS Safety Report 15022453 (Version 2)
Quarter: 2018Q3

REPORT INFORMATION
  Report Type: Report from Study
  Country: BR (occurrence: BR)
  Receive Date: 20180618
  Receipt Date: 20180914
  Transmission Date: 20181010
  Serious: Yes (Other)
  Sender: FDA-Public Use
  Company Number: BR-ACTELION-A-CH2018-173887

PATIENT
  Age: 17 Year
  Sex: Female
  Weight: 71 kg

DRUGS (1)
  1. ZAVESCA [Suspect]
     Active Substance: MIGLUSTAT
     Indication: GAUCHER^S DISEASE TYPE I
     Dosage: 200 MG, QD
     Route: 048
     Dates: start: 20150201, end: 201801

REACTIONS (5)
  - Panic attack [Recovering/Resolving]
  - Seizure [Recovered/Resolved]
  - Tremor [Recovered/Resolved]
  - Photophobia [Unknown]
  - Condition aggravated [Recovering/Resolving]

NARRATIVE: CASE EVENT DATE: 201504
